FAERS Safety Report 5500622-0 (Version None)
Quarter: 2007Q4

REPORT INFORMATION
  Report Type: 
  Country: None (occurrence: None)
  Receive Date: 20071018
  Receipt Date: 20070509
  Transmission Date: 20080405
  Serious: Yes (Other)
  Sender: FDA-Public Use
  Company Number: 2007038581

PATIENT
  Age: 43 Year
  Sex: Female
  Weight: 71.81 kg

DRUGS (5)
  1. NEURONTIN [Suspect]
     Indication: TRIGEMINAL NEURALGIA
     Dosage: 900 MG (300 MG, 3 IN 1 D)
     Dates: start: 20070426
  2. CYMBALTA [Concomitant]
  3. SEROQUEL [Concomitant]
  4. SYNTHROID [Concomitant]
  5. VYTORIN [Concomitant]

REACTIONS (1)
  - SUICIDAL IDEATION [None]
